FAERS Safety Report 11758821 (Version 1)
Quarter: 2015Q4

REPORT INFORMATION
  Report Type: Spontaneous
  Country: US (occurrence: US)
  Receive Date: 20151120
  Receipt Date: 20151120
  Transmission Date: 20160304
  Serious: Yes (Hospitalization, Other)
  Sender: FDA-Public Use
  Company Number: US-PFIZER INC-2015383865

PATIENT
  Age: 76 Year
  Sex: Female
  Weight: 109 kg

DRUGS (4)
  1. COUMADIN [Concomitant]
     Active Substance: WARFARIN SODIUM
     Dosage: DOSE VARIED BASED OFF OF INR RESULTS
  2. XGEVA [Concomitant]
     Active Substance: DENOSUMAB
     Indication: BONE DISORDER
     Dosage: UNK, EVERY 28 DAYS
     Route: 058
  3. POTASSIUM [Concomitant]
     Active Substance: POTASSIUM
     Dosage: 3 PILLS
  4. SUTENT [Suspect]
     Active Substance: SUNITINIB MALATE
     Indication: NEOPLASM MALIGNANT
     Dosage: UNK UNK, 1X/DAY
     Route: 048
     Dates: start: 201510, end: 201510

REACTIONS (5)
  - Diarrhoea [Recovered/Resolved]
  - Femur fracture [Unknown]
  - Dehydration [Recovered/Resolved]
  - Neoplasm malignant [Not Recovered/Not Resolved]
  - Disease progression [Not Recovered/Not Resolved]

NARRATIVE: CASE EVENT DATE: 201510
